FAERS Safety Report 5243856-5 (Version None)
Quarter: 2007Q1

REPORT INFORMATION
  Report Type: 
  Country: None (occurrence: None)
  Receive Date: 20070222
  Receipt Date: 20070212
  Transmission Date: 20070707
  Serious: Yes (Hospitalization)
  Sender: FDA-Public Use
  Company Number: BR-BRISTOL-MYERS SQUIBB COMPANY-13661632

PATIENT
  Age: 56 Year
  Sex: Female

DRUGS (4)
  1. ABATACEPT [Suspect]
     Indication: RHEUMATOID ARTHRITIS
     Route: 042
     Dates: start: 20030602, end: 20070115
  2. METHOTREXATE [Concomitant]
     Dates: start: 20030514, end: 20070125
  3. PREDNISONE 50MG TAB [Concomitant]
     Dates: start: 20030514, end: 20070125
  4. IBUPROFEN [Concomitant]
     Dates: start: 20030514, end: 20070125

REACTIONS (1)
  - SUBCUTANEOUS ABSCESS [None]
